FAERS Safety Report 23577070 (Version 1)
Quarter: 2024Q1

REPORT INFORMATION
  Report Type: Spontaneous
  Country: US (occurrence: None)
  Receive Date: 20240228
  Receipt Date: 20240228
  Transmission Date: 20240410
  Serious: No
  Sender: FDA-Public Use
  Company Number: None

PATIENT
  Age: 73 Year
  Sex: Female

DRUGS (5)
  1. TETRABENAZINE [Suspect]
     Active Substance: TETRABENAZINE
     Indication: Polyneuropathy in malignant disease
     Dosage: 12.5MG DAILY ORAL
     Route: 048
     Dates: start: 202401
  2. TETRABENAZINE [Suspect]
     Active Substance: TETRABENAZINE
     Indication: Neuropathy peripheral
  3. PEPCID [Concomitant]
     Active Substance: FAMOTIDINE
  4. CLONAZEPAM [Concomitant]
     Active Substance: CLONAZEPAM
  5. ANASTROLE [Concomitant]

REACTIONS (1)
  - Drug ineffective [None]

NARRATIVE: CASE EVENT DATE: 20240101
